FAERS Safety Report 21045457 (Version 1)
Quarter: 2022Q3

REPORT INFORMATION
  Report Type: Other
  Country: IE (occurrence: IE)
  Receive Date: 20220706
  Receipt Date: 20220706
  Transmission Date: 20221027
  Serious: Yes (Hospitalization)
  Sender: FDA-Public Use
  Company Number: IE-CELLTRION INC.-2022IE010329

PATIENT

DRUGS (2)
  1. INFLIXIMAB [Suspect]
     Active Substance: INFLIXIMAB
     Indication: Gastrointestinal disorder
     Dosage: INFUSION5 DOSES - THIS WAS THE 5TH DOSE
     Route: 041
     Dates: start: 20220412, end: 20220412
  2. INFLIXIMAB [Suspect]
     Active Substance: INFLIXIMAB
     Dosage: 5 DOSES; FROM 17/NOV/2021 TO 12/APR/2022
     Dates: start: 20211117

REACTIONS (4)
  - Feeling hot [Recovered/Resolved]
  - Tachypnoea [Recovered/Resolved]
  - Oxygen saturation decreased [Recovered/Resolved]
  - Flushing [Recovered/Resolved]

NARRATIVE: CASE EVENT DATE: 20220412
